FAERS Safety Report 25998324 (Version 1)
Quarter: 2025Q4

REPORT INFORMATION
  Report Type: Spontaneous
  Country: KR (occurrence: KR)
  Receive Date: 20251105
  Receipt Date: 20251105
  Transmission Date: 20260118
  Serious: Yes (Hospitalization)
  Sender: CELLTRION
  Company Number: KR-CELLTRION INC.-2025KR039665

PATIENT

DRUGS (7)
  1. EYDENZELT [Suspect]
     Active Substance: AFLIBERCEPT-BOAV
     Indication: Neovascular age-related macular degeneration
     Dosage: UNK
     Dates: start: 20250226
  2. EYDENZELT [Suspect]
     Active Substance: AFLIBERCEPT-BOAV
     Dosage: UNK
     Dates: start: 20250702
  3. EYDENZELT [Suspect]
     Active Substance: AFLIBERCEPT-BOAV
     Dosage: UNK
     Dates: start: 20251010
  4. FLUOROMETHOLONE [Concomitant]
     Active Substance: FLUOROMETHOLONE
     Dosage: 5 ML, QD, ONCE
  5. BROMFENAC SODIUM [Concomitant]
     Active Substance: BROMFENAC SODIUM
     Dosage: 0.5 ML, QD, ONCE
  6. VIGAMOX [Concomitant]
     Active Substance: MOXIFLOXACIN HYDROCHLORIDE
     Dosage: 5 ML, QD, ONCE
  7. RETIUM [Concomitant]
     Dosage: BID, 60DAYS

REACTIONS (1)
  - Fracture [Unknown]

NARRATIVE: CASE EVENT DATE: 20250701
